FAERS Safety Report 7296170-0 (Version None)
Quarter: 2011Q1

REPORT INFORMATION
  Report Type: 
  Country: None (occurrence: None)
  Receive Date: 20110204
  Receipt Date: 20110117
  Transmission Date: 20110831
  Serious: Yes (Hospitalization)
  Sender: FDA-Public Use
  Company Number: 813066

PATIENT
  Age: 50 Year
  Sex: Female

DRUGS (2)
  1. VINORELBINE TARTRATE [Suspect]
     Indication: PRODUCT USED FOR UNKNOWN INDICATION
     Dates: start: 20090626
  2. CAPECITABINE [Suspect]
     Indication: PRODUCT USED FOR UNKNOWN INDICATION
     Dates: start: 20090626

REACTIONS (2)
  - CEREBRAL INFARCTION [None]
  - BLINDNESS UNILATERAL [None]
